FAERS Safety Report 8816904 (Version 1)
Quarter: 2012Q4

REPORT INFORMATION
  Report Type: Spontaneous
  Country: US (occurrence: None)
  Receive Date: 20121002
  Receipt Date: 20121002
  Transmission Date: 20130627
  Serious: Yes (Life-Threatening, Hospitalization)
  Sender: FDA-Public Use
  Company Number: None

PATIENT
  Sex: Female
  Weight: 90.72 kg

DRUGS (1)
  1. SUMATRIPTAN SUCCINATE [Suspect]
     Indication: CHRONIC MIGRAINE
     Dosage: I injection, intrafate PRN IM
     Route: 030
     Dates: start: 20110101, end: 20120828

REACTIONS (4)
  - Angina pectoris [None]
  - Resuscitation [None]
  - Cardiac disorder [None]
  - Electrocardiogram abnormal [None]
